FAERS Safety Report 7809444 (Version 3)
Quarter: 2013Q1

REPORT INFORMATION
  Report Type: Spontaneous
  Country: US (occurrence: US)
  Receive Date: 20110211
  Receipt Date: 20130123
  Transmission Date: 20140127
  Serious: No
  Sender: FDA-Public Use
  Company Number: PHHY2011US09801

PATIENT
  Age: 73 Year
  Sex: Female

DRUGS (5)
  1. TEKTURNA [Suspect]
     Indication: BLOOD PRESSURE ABNORMAL
     Dosage: 300 MG, QD
     Route: 048
  2. TEKTURNA [Suspect]
     Dosage: 150 MG, QD
  3. ATIVAN [Concomitant]
     Dosage: UNK UKN, UNK
  4. CLARITIN [Concomitant]
     Dosage: UNK UKN, UNK
  5. LORAZEPAM [Concomitant]

REACTIONS (7)
  - Malaise [Unknown]
  - Nerve injury [Unknown]
  - Hyperchlorhydria [Unknown]
  - Nausea [Unknown]
  - Crying [Unknown]
  - Fatigue [Unknown]
  - Hypertension [Unknown]
